FAERS Safety Report 7733496-8 (Version None)
Quarter: 2011Q3

REPORT INFORMATION
  Report Type: 
  Country: None (occurrence: None)
  Receive Date: 20110907
  Receipt Date: 20110907
  Transmission Date: 20111222
  Serious: No
  Sender: FDA-Public Use
  Company Number: None

PATIENT
  Age: 53 Year
  Sex: Female
  Weight: 86.182 kg

DRUGS (1)
  1. LEVOTHYROXINE SODIUM [Suspect]
     Indication: THYROID DISORDER
     Dosage: ONE PER DAY
     Dates: start: 20110715, end: 20110808

REACTIONS (5)
  - MUSCLE TWITCHING [None]
  - EYE DISORDER [None]
  - PRODUCT SUBSTITUTION ISSUE [None]
  - HEADACHE [None]
  - EYE PAIN [None]
